FAERS Safety Report 5810452-8 (Version None)
Quarter: 2008Q3

REPORT INFORMATION
  Report Type: 
  Country: None (occurrence: None)
  Receive Date: 20080709
  Receipt Date: 20080625
  Transmission Date: 20090109
  Serious: Yes (Life-Threatening, Hospitalization)
  Sender: FDA-Public Use
  Company Number: 000915

PATIENT
  Age: 70 Year
  Sex: Male

DRUGS (8)
  1. PLETAL [Suspect]
     Indication: PERIPHERAL ARTERIAL OCCLUSIVE DISEASE
     Dosage: 50 MG, ORAL; 50 MG, ORAL
     Route: 048
     Dates: start: 20070905, end: 20080408
  2. PLETAL [Suspect]
     Indication: PERIPHERAL ARTERIAL OCCLUSIVE DISEASE
     Dosage: 50 MG, ORAL; 50 MG, ORAL
     Route: 048
     Dates: start: 20070905, end: 20080408
  3. LERCANIDIPINE [Concomitant]
  4. CARBAMAZEPINE [Concomitant]
  5. BISOPROLOL FUMARATE [Concomitant]
  6. PRAVASTATIN [Concomitant]
  7. ENALAPRIL MALEATE [Concomitant]
  8. SYMBICORT CAN (BUDESONIDE, FORMOTEROL FUMARATE) [Concomitant]

REACTIONS (2)
  - ACUTE MYOCARDIAL INFARCTION [None]
  - CARDIOGENIC SHOCK [None]
